FAERS Safety Report 8163097-1 (Version None)
Quarter: 2012Q1

REPORT INFORMATION
  Report Type: 
  Country: None (occurrence: None)
  Receive Date: 20120224
  Receipt Date: 20120221
  Transmission Date: 20120608
  Serious: Yes (Hospitalization)
  Sender: FDA-Public Use
  Company Number: FR-GLAXOSMITHKLINE-B0782936A

PATIENT
  Age: 85 Year
  Sex: Female

DRUGS (11)
  1. CALCIUM CARBONATE [Concomitant]
  2. DEXAMETHASONE [Concomitant]
     Route: 047
  3. TRAMADOL HCL [Suspect]
     Indication: PRODUCT USED FOR UNKNOWN INDICATION
     Dosage: 150MG TWICE PER DAY
     Route: 048
  4. IMOVANE [Concomitant]
  5. ACETAMINOPHEN [Concomitant]
  6. INDOMETHACIN [Concomitant]
  7. OXAZEPAM [Concomitant]
  8. LEVOTHYROXINE SODIUM [Concomitant]
  9. ASPIRIN [Concomitant]
  10. PAROXETINE HYDROCHLORIDE [Suspect]
     Indication: DEPRESSION
     Dosage: 20MG PER DAY
     Route: 048
     Dates: start: 20111105, end: 20111128
  11. BISOPROLOL FUMARATE [Concomitant]

REACTIONS (4)
  - HYPONATRAEMIA [None]
  - FALL [None]
  - CONFUSIONAL STATE [None]
  - INAPPROPRIATE ANTIDIURETIC HORMONE SECRETION [None]
